FAERS Safety Report 8278932-6 (Version None)
Quarter: 2012Q2

REPORT INFORMATION
  Report Type: 
  Country: None (occurrence: None)
  Receive Date: 20120412
  Receipt Date: 20110915
  Transmission Date: 20120825
  Serious: No
  Sender: FDA-Public Use
  Company Number: US-ASTRAZENECA-2011SE55506

PATIENT
  Age: 56 Year
  Sex: Female
  Weight: 49.9 kg

DRUGS (5)
  1. SEROQUEL [Suspect]
     Indication: ANGER
     Route: 048
  2. ATENOLOL [Concomitant]
     Indication: CARDIOVASCULAR EVENT PROPHYLAXIS
     Route: 048
     Dates: start: 20090101
  3. OMEGA 3 VITAMINS [Suspect]
     Route: 065
  4. NEXIUM [Suspect]
     Indication: GASTROOESOPHAGEAL REFLUX DISEASE
     Route: 048
     Dates: start: 19990101
  5. PERCOSIST [Concomitant]
     Indication: FIBROMYALGIA
     Dosage: PRN
     Route: 048

REACTIONS (10)
  - FIBROMYALGIA [None]
  - GASTROOESOPHAGEAL REFLUX DISEASE [None]
  - OSTEOPOROSIS [None]
  - RECTAL HAEMORRHAGE [None]
  - BLOOD TEST ABNORMAL [None]
  - EMPHYSEMA [None]
  - ARTHRITIS [None]
  - ASTHMA [None]
  - ANGER [None]
  - DIARRHOEA [None]
